FAERS Safety Report 9980879 (Version 1)
Quarter: 2014Q1

REPORT INFORMATION
  Report Type: Spontaneous
  Country: US (occurrence: US)
  Receive Date: 20140307
  Receipt Date: 20140307
  Transmission Date: 20141002
  Serious: No
  Sender: FDA-Public Use
  Company Number: US-GLAXOSMITHKLINE-A1013485A

PATIENT
  Age: 44 Year
  Sex: Female

DRUGS (2)
  1. REQUIP [Suspect]
     Indication: RESTLESS LEGS SYNDROME
     Dosage: 2MG UNKNOWN
     Route: 065
     Dates: start: 20110416
  2. REQUIP XL [Suspect]
     Indication: RESTLESS LEGS SYNDROME
     Dosage: 4MG UNKNOWN
     Route: 065

REACTIONS (3)
  - Drug ineffective [Unknown]
  - Incorrect dose administered [Unknown]
  - Incorrect drug dosage form administered [Unknown]
